FAERS Safety Report 8473775-2 (Version None)
Quarter: 2012Q2

REPORT INFORMATION
  Report Type: 
  Country: None (occurrence: None)
  Receive Date: 20120628
  Receipt Date: 20111103
  Transmission Date: 20120825
  Serious: Yes (Other)
  Sender: FDA-Public Use
  Company Number: US-MYLANLABS-2011S1022952

PATIENT

DRUGS (3)
  1. LAMICTAL [Concomitant]
  2. CLOZAPINE [Suspect]
     Route: 048
  3. KLONOPIN [Concomitant]

REACTIONS (1)
  - THROMBOCYTOPENIA [None]
